FAERS Safety Report 24908202 (Version 1)
Quarter: 2025Q1

REPORT INFORMATION
  Report Type: Spontaneous
  Country: IT (occurrence: IT)
  Receive Date: 20250131
  Receipt Date: 20250131
  Transmission Date: 20250408
  Serious: Yes (Hospitalization, Other)
  Sender: Steriscience PTE
  Company Number: IT-STERISCIENCE B.V.-2025-ST-000157

PATIENT
  Age: 43 Year
  Sex: Female

DRUGS (2)
  1. MEROPENEM [Suspect]
     Active Substance: MEROPENEM
     Indication: Osteomyelitis
     Route: 065
  2. TEICOPLANIN [Suspect]
     Active Substance: TEICOPLANIN
     Indication: Osteomyelitis
     Route: 065

REACTIONS (3)
  - Necrotising fasciitis [Unknown]
  - Sepsis [Unknown]
  - Drug ineffective [Unknown]
